FAERS Safety Report 9197191 (Version 1)
Quarter: 2013Q1

REPORT INFORMATION
  Report Type: Spontaneous
  Country: US (occurrence: US)
  Receive Date: 20130328
  Receipt Date: 20130328
  Transmission Date: 20140127
  Serious: Yes (Death)
  Sender: FDA-Public Use
  Company Number: US-PFIZER INC-2013096099

PATIENT
  Age: 63 Year
  Sex: Male

DRUGS (1)
  1. REVATIO [Suspect]
     Indication: HEART TRANSPLANT
     Dosage: 20 MG, 3X/DAY
     Dates: start: 20120127

REACTIONS (2)
  - Death [Fatal]
  - Off label use [Unknown]
